FAERS Safety Report 13406449 (Version 2)
Quarter: 2017Q2

REPORT INFORMATION
  Report Type: Report from Study
  Country: US (occurrence: US)
  Receive Date: 20170405
  Receipt Date: 20170614
  Transmission Date: 20170830
  Serious: Yes (Hospitalization)
  Sender: FDA-Public Use
  Company Number: US-BAYER-2017-058733

PATIENT
  Age: 66 Year
  Sex: Male

DRUGS (5)
  1. NEXAVAR [Suspect]
     Active Substance: SORAFENIB
     Indication: METASTASES TO BONE
     Dosage: 400 MG, BID
     Route: 048
     Dates: start: 2017, end: 201706
  2. VIAGRA [Concomitant]
     Active Substance: SILDENAFIL CITRATE
  3. ASPIRINE [Concomitant]
     Active Substance: ASPIRIN
     Dosage: LOW DOSE
  4. AMLODIPINE BESYLATE. [Concomitant]
     Active Substance: AMLODIPINE BESYLATE
  5. LEVOTHYROXINE SODIUM. [Concomitant]
     Active Substance: LEVOTHYROXINE SODIUM

REACTIONS (3)
  - Surgery [None]
  - Adverse drug reaction [None]
  - Off label use [None]

NARRATIVE: CASE EVENT DATE: 2017
